FAERS Safety Report 23436839 (Version 1)
Quarter: 2024Q1

REPORT INFORMATION
  Report Type: Spontaneous
  Country: GB (occurrence: GB)
  Receive Date: 20240124
  Receipt Date: 20240124
  Transmission Date: 20240410
  Serious: Yes (Other)
  Sender: FDA-Public Use
  Company Number: None

PATIENT
  Age: 68 Year
  Sex: Female

DRUGS (18)
  1. CLOPIDOGREL [Suspect]
     Active Substance: CLOPIDOGREL BISULFATE
     Indication: Product used for unknown indication
     Dosage: EVERY MORNING
  2. POTASSIUM BICARBONATE\POTASSIUM CHLORIDE [Concomitant]
     Active Substance: POTASSIUM BICARBONATE\POTASSIUM CHLORIDE
     Dosage: 3/7
  3. AMOXICILLIN\CLAVULANATE POTASSIUM [Concomitant]
     Active Substance: AMOXICILLIN\CLAVULANATE POTASSIUM
     Dosage: 500/125 1 TDS 10/7
  4. LANSOPRAZOLE [Concomitant]
     Active Substance: LANSOPRAZOLE
     Dosage: EVERY MORNING
  5. MORPHINE [Concomitant]
     Active Substance: MORPHINE
     Dosage: 10MG IN 5ML
  6. BUTYLSCOPOLAMINE BROMIDE [Concomitant]
     Active Substance: BUTYLSCOPOLAMINE BROMIDE
  7. LACTULOSE [Concomitant]
     Active Substance: LACTULOSE
  8. POLYETHYLENE GLYCOLS [Concomitant]
     Active Substance: POLYETHYLENE GLYCOLS
     Dosage: EVERY MORNING AND NIGHT
  9. HYDROXYZINE [Concomitant]
     Active Substance: HYDROXYZINE HYDROCHLORIDE
     Indication: Pruritus
     Dosage: 25MG 1 ON
  10. ATENOLOL [Concomitant]
     Active Substance: ATENOLOL
  11. MEBEVERINE [Concomitant]
     Active Substance: MEBEVERINE
     Dosage: MEALS
  12. MAGNESIUM ASPARTATE [Concomitant]
     Active Substance: MAGNESIUM ASPARTATE
     Dosage: OM/ON 3/7
  13. ROSUVASTATIN [Concomitant]
     Active Substance: ROSUVASTATIN
  14. CYCLIZINE [Concomitant]
     Active Substance: CYCLIZINE
     Dosage: 50MG 1 TDS PRN - STILL TAKING, PRN
  15. DALTEPARIN [Concomitant]
     Active Substance: DALTEPARIN
     Dosage: 5000 UNITS IN 0.2ML PRE FILLED SYRINGE
  16. ONDANSETRON [Concomitant]
     Active Substance: ONDANSETRON
     Dosage: 4MG IN 2ML
  17. SENNA [Concomitant]
     Active Substance: SENNA LEAF\SENNOSIDES\SENNOSIDES A AND B
     Dosage: 7.5MG 2 ON PRN
  18. ACETAMINOPHEN [Concomitant]
     Active Substance: ACETAMINOPHEN
     Dosage: 500MG TABLETS 2 QDS - TAKING PRN

REACTIONS (1)
  - Stoma site haemorrhage [Recovered/Resolved]

NARRATIVE: CASE EVENT DATE: 20230720
